FAERS Safety Report 8602105-8 (Version None)
Quarter: 2012Q3

REPORT INFORMATION
  Report Type: 
  Country: None (occurrence: None)
  Receive Date: 20120817
  Receipt Date: 20120815
  Transmission Date: 20120928
  Serious: Yes (Disabling, Other)
  Sender: FDA-Public Use
  Company Number: US-PFIZER INC-2012200448

PATIENT
  Sex: Female
  Weight: 68.027 kg

DRUGS (2)
  1. NORVASC [Suspect]
     Indication: HYPERTENSION
     Dosage: 5 MG, DAILY
     Dates: start: 19900101
  2. NORVASC [Suspect]
     Dosage: 10 MG, DAILY

REACTIONS (4)
  - BLINDNESS UNILATERAL [None]
  - CATARACT [None]
  - RETINAL DETACHMENT [None]
  - VISUAL IMPAIRMENT [None]
